FAERS Safety Report 10818452 (Version 1)
Quarter: 2015Q1

REPORT INFORMATION
  Report Type: Spontaneous
  Country: US (occurrence: US)
  Receive Date: 20150218
  Receipt Date: 20150218
  Transmission Date: 20150721
  Serious: No
  Sender: FDA-Public Use
  Company Number: US-EISAI MEDICAL RESEARCH-E2080-00700-SPO-US

PATIENT
  Age: 47 Year
  Sex: Female
  Weight: 86.3 kg

DRUGS (8)
  1. INDOMETHACIN. [Concomitant]
     Active Substance: INDOMETHACIN
     Indication: HEADACHE
     Route: 048
     Dates: start: 2010
  2. KEPPRA [Concomitant]
     Active Substance: LEVETIRACETAM
     Indication: EPILEPSY
     Route: 048
     Dates: start: 2012
  3. PHENERGAN [Concomitant]
     Active Substance: PROMETHAZINE HYDROCHLORIDE
     Indication: PAIN
     Dosage: 25 MG
     Route: 048
     Dates: start: 2012
  4. PROZAC [Concomitant]
     Active Substance: FLUOXETINE HYDROCHLORIDE
     Indication: DEPRESSION
     Route: 048
     Dates: start: 2013
  5. AMBIEN [Concomitant]
     Active Substance: ZOLPIDEM TARTRATE
     Indication: INSOMNIA
     Dosage: 10 MG
     Route: 048
     Dates: start: 2012
  6. LORTAB [Concomitant]
     Active Substance: ACETAMINOPHEN\HYDROCODONE BITARTRATE
     Indication: PAIN
     Dosage: 10 MG
     Route: 048
     Dates: start: 2012
  7. BANZEL [Suspect]
     Active Substance: RUFINAMIDE
     Indication: EPILEPSY
     Dosage: 1/2 TABLET (DOSAGE UNSPECIFIED)
     Route: 048
     Dates: start: 201402
  8. XANAFLEX [Concomitant]
     Indication: MUSCLE RELAXANT THERAPY
     Route: 048

REACTIONS (2)
  - Insomnia [Not Recovered/Not Resolved]
  - Herpes zoster [Not Recovered/Not Resolved]

NARRATIVE: CASE EVENT DATE: 201402
